FAERS Safety Report 8715133 (Version 6)
Quarter: 2013Q2

REPORT INFORMATION
  Report Type: Spontaneous
  Country: GB (occurrence: GB)
  Receive Date: 20120809
  Receipt Date: 20130621
  Transmission Date: 20140414
  Serious: Yes (Death, Other)
  Sender: FDA-Public Use
  Company Number: GB-PFIZER INC-2012166405

PATIENT
  Age: 79 Year
  Sex: Female
  Weight: 55.45 kg

DRUGS (27)
  1. SPIRONOLACTONE [Suspect]
     Dosage: UNK
  2. CLARITHROMYCIN [Suspect]
     Indication: PNEUMONIA
     Dosage: 500 MG, 2X/DAY
     Route: 048
     Dates: start: 20120512, end: 20120521
  3. ZOCOR [Suspect]
     Dosage: UNK
     Route: 048
  4. BUMETANIDE [Suspect]
     Dosage: UNK
  5. GENTAMICIN [Concomitant]
  6. OMEPRAZOLE [Concomitant]
  7. ADENOSINE [Concomitant]
  8. FUROSEMIDE [Concomitant]
  9. DALTEPARIN SODIUM [Concomitant]
  10. CANDESARTAN [Concomitant]
  11. CO-AMOXICLAV [Concomitant]
  12. TEICOPLANIN [Concomitant]
     Indication: PNEUMONIA
  13. PARACETAMOL [Concomitant]
  14. BISOPROLOL [Concomitant]
     Dosage: INCREASED TO 5MG ONCE DAILY.
  15. HEPARIN [Concomitant]
     Indication: PULMONARY EMBOLISM
  16. AMIODARONE [Concomitant]
     Dosage: STOPPED AS RISK OF LUNG FIBROSIS
  17. CLOTRIMAZOLE [Concomitant]
  18. FORTISIP [Concomitant]
  19. METOCLOPRAMIDE [Concomitant]
  20. METHOTREXATE [Concomitant]
     Indication: PRODUCT USED FOR UNKNOWN INDICATION
     Dosage: UNK
  21. FOLIC ACID [Concomitant]
  22. ADCAL-D3 [Concomitant]
  23. TRAMADOL [Concomitant]
  24. CO-CODAMOL [Concomitant]
  25. DIORALYTE [Concomitant]
  26. DICLOFENAC DIETHYLAMMONIUM SALT [Concomitant]
  27. WARFARIN [Concomitant]
     Indication: PULMONARY EMBOLISM

REACTIONS (22)
  - Stevens-Johnson syndrome [Fatal]
  - Toxic epidermal necrolysis [Fatal]
  - Renal failure acute [Unknown]
  - Oedema peripheral [Unknown]
  - Atrial fibrillation [Unknown]
  - Blister [Unknown]
  - Blood creatinine increased [Unknown]
  - Scab [Unknown]
  - Eczema [Unknown]
  - Fluid overload [Unknown]
  - Pruritus [Unknown]
  - Erythema [Unknown]
  - Hypersensitivity [Unknown]
  - Pain [Unknown]
  - Haemoglobin decreased [Unknown]
  - Exfoliative rash [Unknown]
  - Dry skin [Unknown]
  - Rash pruritic [Unknown]
  - Swelling [Unknown]
  - Rash maculo-papular [Unknown]
  - Rash generalised [Unknown]
  - Petechiae [Unknown]
